FAERS Safety Report 9337851 (Version 2)
Quarter: 2013Q4

REPORT INFORMATION
  Report Type: Spontaneous
  Country: US (occurrence: US)
  Receive Date: 20130607
  Receipt Date: 20131008
  Transmission Date: 20140711
  Serious: No
  Sender: FDA-Public Use
  Company Number: US-AMGEN-USASP2012081432

PATIENT
  Age: 79 Year
  Sex: Female

DRUGS (1)
  1. PROLIA [Suspect]
     Indication: OSTEOPOROSIS POSTMENOPAUSAL
     Dosage: UNK
     Route: 030
     Dates: start: 20120905

REACTIONS (21)
  - Gastrointestinal pain [Unknown]
  - Urinary tract infection [Unknown]
  - Arthropathy [Unknown]
  - Gingival disorder [Unknown]
  - Immune system disorder [Not Recovered/Not Resolved]
  - Incorrect route of drug administration [Unknown]
  - Loose tooth [Unknown]
  - Bone disorder [Unknown]
  - Decreased appetite [Unknown]
  - Weight decreased [Unknown]
  - Nausea [Unknown]
  - Fibrin D dimer increased [Unknown]
  - Red blood cell sedimentation rate increased [Unknown]
  - C-reactive protein increased [Unknown]
  - Infection [Unknown]
  - Pain in jaw [Not Recovered/Not Resolved]
  - Mobility decreased [Unknown]
  - Dyspepsia [Unknown]
  - Rheumatic disorder [Unknown]
  - Back pain [Unknown]
  - Bone pain [Unknown]
